FAERS Safety Report 20367468 (Version 2)
Quarter: 2022Q1

REPORT INFORMATION
  Report Type: Report from Study
  Country: US (occurrence: US)
  Receive Date: 20220124
  Receipt Date: 20220201
  Transmission Date: 20220423
  Serious: Yes (Hospitalization, Other)
  Sender: FDA-Public Use
  Company Number: US-BAXTER-2022BAX001061

PATIENT
  Age: 9 Year
  Sex: Male
  Weight: 27.4 kg

DRUGS (10)
  1. CYCLOPHOSPHAMIDE [Suspect]
     Active Substance: CYCLOPHOSPHAMIDE
     Indication: Embryonal rhabdomyosarcoma
     Dosage: (OVER 60 MINUTES ON DAY OF CYCLES 1 AND 3; ON DAY 1 OF CYCLES 5 AND 8)
     Route: 042
     Dates: start: 20160629, end: 20161122
  2. CYCLOPHOSPHAMIDE [Suspect]
     Active Substance: CYCLOPHOSPHAMIDE
     Dosage: TOTAL DOSE ADMINISTERED IN COURSE 8
     Route: 042
     Dates: start: 20161122, end: 20161122
  3. MESNEX [Suspect]
     Active Substance: MESNA
     Indication: Product used for unknown indication
     Route: 065
     Dates: start: 20160629
  4. CAMPTOSAR [Suspect]
     Active Substance: IRINOTECAN HYDROCHLORIDE
     Indication: Embryonal rhabdomyosarcoma
     Dosage: CYCLIC (OVER 90 MINUTES ON DAYS 1-5 OF CYCLES 2 AND 4; ON DAYS 1-5 OF CYCLES 6 AND 7),
     Route: 042
     Dates: start: 20160629
  5. TEMSIROLIMUS [Suspect]
     Active Substance: TEMSIROLIMUS
     Indication: Embryonal rhabdomyosarcoma
     Dosage: CYCLIC (OVER 30-60 MINUTES ON DAYS 1, 8 AND 15 OF CYCLE 1-4 AND 8)
     Route: 042
     Dates: start: 20160706, end: 20161122
  6. TEMSIROLIMUS [Suspect]
     Active Substance: TEMSIROLIMUS
     Dosage: COURSE 8
     Route: 042
     Dates: start: 20161122, end: 20161122
  7. VINCRISTINE SULFATE [Suspect]
     Active Substance: VINCRISTINE SULFATE
     Indication: Embryonal rhabdomyosarcoma
     Dosage: CYCLIC (OVER 1 MINUTE OR INFUSION VIA MINIBAG ON DAYS 1, 8, AND 15 ON CYCLES 1-4; ON DAY 1 OF CYCLE
     Route: 042
     Dates: start: 20160629, end: 20161130
  8. VINCRISTINE SULFATE [Suspect]
     Active Substance: VINCRISTINE SULFATE
     Dosage: COURSE 8
     Route: 042
     Dates: start: 20161122, end: 20161122
  9. DACTINOMYCIN [Suspect]
     Active Substance: DACTINOMYCIN
     Indication: Embryonal rhabdomyosarcoma
     Dosage: (CYCLIC (OVER 1-5 MINUTES ON DAY 1 OF CYCLES 1 AND 3; ON DAY 1 OF CYCLES 5 AND 8)
     Route: 042
     Dates: start: 20160629, end: 20161122
  10. DACTINOMYCIN [Suspect]
     Active Substance: DACTINOMYCIN
     Dosage: COURSE 8
     Route: 042
     Dates: start: 20161122, end: 20161122

REACTIONS (2)
  - Pneumonia [Recovered/Resolved]
  - Pneumonitis [Recovered/Resolved]

NARRATIVE: CASE EVENT DATE: 20161128
